FAERS Safety Report 6034214-4 (Version None)
Quarter: 2009Q1

REPORT INFORMATION
  Report Type: 
  Country: None (occurrence: None)
  Receive Date: 20090112
  Receipt Date: 20090102
  Transmission Date: 20090719
  Serious: Yes (Other)
  Sender: FDA-Public Use
  Company Number: US-AMGEN-QUU325059

PATIENT
  Sex: Male
  Weight: 78.2 kg

DRUGS (13)
  1. ENBREL [Suspect]
     Indication: RHEUMATOID ARTHRITIS
     Route: 058
     Dates: start: 20030101
  2. ASPIRIN [Concomitant]
  3. CALCIUM CARBONATE [Concomitant]
  4. HYDROCHLOROTHIAZIDE [Concomitant]
     Route: 048
  5. LISINOPRIL [Concomitant]
     Route: 048
  6. MULTI-VITAMINS [Concomitant]
     Route: 048
  7. LOVAZA [Concomitant]
  8. POTASSIUM CHLORIDE [Concomitant]
     Route: 048
  9. PREDNISONE TAB [Concomitant]
     Route: 048
  10. DARVOCET-N 100 [Concomitant]
     Route: 048
  11. SIMVASTATIN [Concomitant]
     Route: 048
  12. SELENIUM [Concomitant]
     Dates: end: 20081219
  13. TADALAFIL [Concomitant]
     Dates: end: 20081219

REACTIONS (13)
  - AORTIC DISORDER [None]
  - ARTHRALGIA [None]
  - BASAL CELL CARCINOMA [None]
  - CATHETERISATION CARDIAC [None]
  - DYSGEUSIA [None]
  - DYSLIPIDAEMIA [None]
  - GASTROOESOPHAGEAL REFLUX DISEASE [None]
  - HAND DEFORMITY [None]
  - INGROWING NAIL [None]
  - METASTATIC SQUAMOUS CELL CARCINOMA [None]
  - OSTEOARTHRITIS [None]
  - OSTEOPENIA [None]
  - RHEUMATOID ARTHRITIS [None]
